FAERS Safety Report 9129350 (Version 1)
Quarter: 2013Q1

REPORT INFORMATION
  Report Type: Spontaneous
  Country: US (occurrence: US)
  Receive Date: 20130228
  Receipt Date: 20130228
  Transmission Date: 20140127
  Serious: No
  Sender: FDA-Public Use
  Company Number: US-ABBOTT-13P-163-1047245-00

PATIENT
  Sex: Male
  Weight: 79.45 kg

DRUGS (8)
  1. ANDROGEL [Suspect]
     Indication: BLOOD TESTOSTERONE DECREASED
     Dosage: 1 PUMP ACTUATION
     Dates: start: 201211, end: 201212
  2. ANDROGEL [Suspect]
     Dosage: TWO PUMP ACTUATIONS
     Dates: start: 201212, end: 201302
  3. ANDROGEL [Suspect]
     Dosage: 3 PUMP ACTUATIONS
     Dates: start: 201302
  4. ALLOPURINOL [Concomitant]
     Indication: GOUT
  5. PRAVASTATIN [Concomitant]
     Indication: BLOOD CHOLESTEROL INCREASED
  6. FISH OIL [Concomitant]
     Indication: PRODUCT USED FOR UNKNOWN INDICATION
  7. BABY ASPIRIN [Concomitant]
     Indication: PRODUCT USED FOR UNKNOWN INDICATION
  8. VITIAMINS [Concomitant]
     Indication: EYE DISORDER

REACTIONS (1)
  - Blood testosterone decreased [Not Recovered/Not Resolved]
